FAERS Safety Report 16518229 (Version 4)
Quarter: 2020Q1

REPORT INFORMATION
  Report Type: Spontaneous
  Country: US (occurrence: US)
  Receive Date: 20190702
  Receipt Date: 20200226
  Transmission Date: 20200409
  Serious: Yes (Death)
  Sender: FDA-Public Use
  Company Number: US-PFIZER INC-2016381910

PATIENT
  Age: 60 Year
  Sex: Male

DRUGS (37)
  1. VITAMIN D3 [Concomitant]
     Active Substance: CHOLECALCIFEROL
     Dosage: 5000 IU, DAILY
     Route: 048
  2. VSL#3 [Concomitant]
     Active Substance: PROBIOTICS NOS
     Dosage: 1 DF, DAILY (1 PACKET BY MOUTH)
     Route: 048
  3. LASIX [Concomitant]
     Active Substance: FUROSEMIDE
     Dosage: 40 MG, DAILY
     Route: 048
  4. CHRONULAC [Concomitant]
     Active Substance: LACTULOSE
     Indication: CONSTIPATION
     Dosage: 45 ML, AS NEEDED (TAKE 45 ML BY MOUTH DAILY)
     Route: 048
  5. HIPREX [Concomitant]
     Active Substance: METHENAMINE HIPPURATE
     Dosage: 1 G, 2X/DAY (WITH MEALS)
     Route: 048
  6. NASONEX [Concomitant]
     Active Substance: MOMETASONE FUROATE
     Dosage: 1 DF, 1X/DAY (SPRAY IN EACH NOSTRIL NIGHTLY AS DIRECTED)
     Route: 045
  7. POLYETHYLENE GLYCOL [Concomitant]
     Active Substance: POLYETHYLENE GLYCOLS
     Indication: CONSTIPATION
     Dosage: 17 G, DAILY (TAKE 17 G BY MOUTH DAILY, MAY TAKE TWICE A DAY PRN)
     Route: 048
  8. LYRICA [Suspect]
     Active Substance: PREGABALIN
     Indication: NEUROPATHY PERIPHERAL
     Dosage: 100 MG, 3X/DAY
     Route: 048
     Dates: start: 20081114, end: 20190923
  9. SINGULAIR [Concomitant]
     Active Substance: MONTELUKAST SODIUM
     Dosage: 10 MG, 1X/DAY (TAKE 1 TAB BY MOUTH EVERY EVENING)
     Route: 048
  10. ELIQUIS [Concomitant]
     Active Substance: APIXABAN
     Dosage: 20 MG, 2X/DAY
     Route: 048
  11. CARDIZEM CD [Concomitant]
     Active Substance: DILTIAZEM HYDROCHLORIDE
     Dosage: 180 MG, DAILY (1 CAP BY MOUTH DAILY (WITH LUNCH)
     Route: 048
  12. DURAGESIC MAT [Concomitant]
     Active Substance: FENTANYL
     Dosage: UNK (1 PATCH BY TRANSDERMAL ROUTE EVERY 72 HOURS)
     Route: 062
  13. PRINIVIL [Concomitant]
     Active Substance: LISINOPRIL
     Dosage: 5 MG, DAILY
     Route: 048
  14. POLYETHYLENE GLYCOL;PROPYLENE GLYCOL [Concomitant]
     Dosage: UNK UNK, AS NEEDED (PLACE 1 DROP IN AFFECTED EYE(::I) AS NEEDED (DRY EYES))
  15. OCEAN SALINE NASAL SPRAY [Concomitant]
     Active Substance: SODIUM CHLORIDE
     Dosage: UNK UNK, AS NEEDED (SPRAY BY NASAL ROUTE AS NEEDED)
     Route: 045
  16. KENALOG [Concomitant]
     Active Substance: TRIAMCINOLONE ACETONIDE
     Dosage: UNK (APPLY THIN FILM TO AFFECTED AREA(S) TWICE DAILY UNTIL HEALED)
  17. MACRODANTIN [Concomitant]
     Active Substance: NITROFURANTOIN
     Dosage: UNK
  18. VITAMIN B12 [Concomitant]
     Active Substance: CYANOCOBALAMIN
     Dosage: 1 ML, UNK (1 ML BY LNTRAMUSCULAR ROUTE EVERY 30 DAYS)
     Route: 030
  19. DOCUSATE SODIUM. [Concomitant]
     Active Substance: DOCUSATE SODIUM
     Indication: CONSTIPATION
     Dosage: 100 MG, AS NEEDED (TAKE 100MG BY MOUTH 2 TIMES DAILY)
     Route: 048
  20. DUONEB [Concomitant]
     Active Substance: ALBUTEROL SULFATE\IPRATROPIUM BROMIDE
     Dosage: 3 ML, AS NEEDED (3 ML BY NEBULLZATION ROUTE 4 LIMES DALLY)
  21. ATIVAN [Concomitant]
     Active Substance: LORAZEPAM
     Dosage: 1 MG, AS NEEDED (TAKE1 TABLET EVERY NIGHT)
     Route: 048
  22. ZOFRAN [Concomitant]
     Active Substance: ONDANSETRON HYDROCHLORIDE
     Indication: NAUSEA
     Dosage: 4 MG, AS NEEDED (TAKE 1 TAB BY MOUTH 4 TIMES DAILY)
     Route: 048
  23. DILAUDID [Concomitant]
     Active Substance: HYDROMORPHONE HYDROCHLORIDE
     Dosage: 4 MG, UNK
  24. LIORESAL [Concomitant]
     Active Substance: BACLOFEN
     Dosage: 20 MG, 4X/DAY
     Route: 048
  25. CRANBERRY. [Concomitant]
     Active Substance: CRANBERRY
     Dosage: 1 DF, DAILY (TAKE 1 TAB BY MOUTH DAILY)
     Route: 048
  26. VITAMIN B12 [Concomitant]
     Active Substance: CYANOCOBALAMIN
     Dosage: 1 DF, DAILY (TAKE ONE TABLET BY MOUTH DAILY)
     Route: 048
  27. MYCOSTATIN [Concomitant]
     Active Substance: NYSTATIN
     Dosage: UNK UNK, AS NEEDED (APPLY 3 TIMES DALLY. APPLY THIN FILM TO AFFECTED AREA AS DIRECTED)
  28. STERILE WATER [Concomitant]
     Active Substance: WATER
     Dosage: UNK (120 ML IRRIGATION ROUTE DAILY)
  29. ZOLPIDEM [Concomitant]
     Active Substance: ZOLPIDEM TARTRATE
     Indication: SLEEP DISORDER
     Dosage: 12.5 MG, AS NEEDED (TAKE 12.5 MG BY MOUTH NIGHTLY)
     Route: 048
  30. KENALOG [Concomitant]
     Active Substance: TRIAMCINOLONE ACETONIDE
     Dosage: UNK UNK, 2X/DAY (APPLY THIN FILM TO AFFTED AREA(S) TWICE DAILY UNTIL HEALED)
  31. GLUCOPHAGE [Concomitant]
     Active Substance: METFORMIN HYDROCHLORIDE
     Dosage: 1000 MG, 2X/DAY
     Route: 048
  32. LYRICA [Suspect]
     Active Substance: PREGABALIN
     Indication: PAIN
     Dosage: 100 MG, 2X/DAY
     Route: 048
     Dates: start: 20190924, end: 20200113
  33. ZESTRIL [Concomitant]
     Active Substance: LISINOPRIL
     Dosage: 5 MG, DAILY
     Route: 048
  34. ZOFRAN [Concomitant]
     Active Substance: ONDANSETRON HYDROCHLORIDE
     Indication: BACK PAIN
  35. ZOFRAN [Concomitant]
     Active Substance: ONDANSETRON HYDROCHLORIDE
     Indication: NEUROPATHY PERIPHERAL
  36. VITAMIN B-1 [Concomitant]
     Active Substance: THIAMINE HYDROCHLORIDE
     Dosage: 250 MG, DAILY
     Route: 048
  37. XANAX [Concomitant]
     Active Substance: ALPRAZOLAM
     Dosage: 0.5 MG, 2X/DAY
     Route: 048

REACTIONS (3)
  - Urinary tract infection [Fatal]
  - Confusional state [Unknown]
  - Sepsis [Fatal]
